FAERS Safety Report 22003680 (Version 15)
Quarter: 2023Q4

REPORT INFORMATION
  Report Type: Report from Study
  Country: VN (occurrence: None)
  Receive Date: 20230217
  Receipt Date: 20231018
  Transmission Date: 20240109
  Serious: Yes (Death, Hospitalization)
  Sender: FDA-Public Use
  Company Number: VN-ROCHE-3277145

PATIENT
  Age: 73 Year
  Sex: Male
  Weight: 62 kg

DRUGS (75)
  1. ATEZOLIZUMAB [Suspect]
     Active Substance: ATEZOLIZUMAB
     Indication: Lung squamous cell carcinoma stage III
     Dosage: DOSE LAST STUDY DRUG ADMIN PRIOR AE/SAE 1680 MG?START DATE OF MOST RECENT DOSE OF STUDY DRUG PRIOR T
     Route: 041
     Dates: start: 20230113
  2. LEVOFLOXACIN [Concomitant]
     Active Substance: LEVOFLOXACIN
     Indication: Pneumonia
     Route: 048
     Dates: start: 20230128, end: 20230206
  3. LEVOFLOXACIN [Concomitant]
     Active Substance: LEVOFLOXACIN
     Indication: Bronchitis
     Route: 042
     Dates: start: 20230201, end: 20230206
  4. AGIFUROS [Concomitant]
     Indication: Hypertension
     Route: 048
     Dates: start: 20230128, end: 20230206
  5. AGIFUROS [Concomitant]
     Route: 048
     Dates: start: 20230202, end: 20230206
  6. TATANOL [Concomitant]
     Indication: Analgesic therapy
     Route: 048
     Dates: start: 20230129, end: 20230206
  7. TATANOL [Concomitant]
     Route: 048
     Dates: start: 20230129, end: 20230206
  8. TATANOL [Concomitant]
     Route: 048
     Dates: start: 20230201, end: 20230201
  9. TATANOL [Concomitant]
     Route: 048
     Dates: start: 20230128, end: 20230128
  10. TATANOL [Concomitant]
     Route: 048
     Dates: start: 20230206, end: 20230206
  11. LOSARTAN [Concomitant]
     Active Substance: LOSARTAN
     Indication: Hypertension
     Route: 048
     Dates: start: 20230128, end: 20230206
  12. LOSARTAN [Concomitant]
     Active Substance: LOSARTAN
     Route: 048
     Dates: start: 20230129, end: 20230206
  13. PLAVIX [Concomitant]
     Active Substance: CLOPIDOGREL BISULFATE
     Indication: Myocardial ischaemia
     Route: 048
     Dates: start: 20230128, end: 20230206
  14. LEVOFLOXACIN [Concomitant]
     Active Substance: LEVOFLOXACIN
     Indication: Pneumonia
     Dosage: 0.5G/100ML
     Route: 042
     Dates: start: 20230206, end: 20230212
  15. MAGNESIUM SULFATE [Concomitant]
     Active Substance: MAGNESIUM SULFATE
     Route: 042
     Dates: start: 20230206, end: 20230206
  16. SODIUM CHLORIDE [Concomitant]
     Active Substance: SODIUM CHLORIDE
     Indication: Infusion
     Dosage: DOSE: 500 OTHER,500 ML
     Route: 042
     Dates: start: 20230206, end: 20230206
  17. SODIUM CHLORIDE [Concomitant]
     Active Substance: SODIUM CHLORIDE
     Indication: Fatigue
     Dosage: DOSE: 100 OTHER
     Route: 042
     Dates: start: 20230206, end: 20230208
  18. SODIUM CHLORIDE [Concomitant]
     Active Substance: SODIUM CHLORIDE
     Dosage: DOSE: 9 OTHER,3 ML
     Route: 042
     Dates: start: 20230213, end: 20230213
  19. SODIUM CHLORIDE [Concomitant]
     Active Substance: SODIUM CHLORIDE
     Dosage: DOSE: 4 OTHER, 4ML
     Route: 042
     Dates: start: 20230211, end: 20230211
  20. SODIUM CHLORIDE [Concomitant]
     Active Substance: SODIUM CHLORIDE
     Dosage: DOSE: 9 OTHER,3 ML
     Route: 042
     Dates: start: 20230212, end: 20230212
  21. SODIUM CHLORIDE [Concomitant]
     Active Substance: SODIUM CHLORIDE
     Dosage: DOSE: 9 OTHER
     Route: 042
     Dates: start: 20230209, end: 20230213
  22. SODIUM CHLORIDE [Concomitant]
     Active Substance: SODIUM CHLORIDE
     Dosage: 500
     Route: 042
     Dates: start: 20230210, end: 20230210
  23. SODIUM CHLORIDE [Concomitant]
     Active Substance: SODIUM CHLORIDE
     Route: 042
     Dates: start: 20230210, end: 20230210
  24. SODIUM CHLORIDE [Concomitant]
     Active Substance: SODIUM CHLORIDE
     Route: 042
     Dates: start: 20230214, end: 20230214
  25. SODIUM CHLORIDE [Concomitant]
     Active Substance: SODIUM CHLORIDE
     Route: 042
     Dates: start: 20230210, end: 20230211
  26. PIPERACILLIN [Concomitant]
     Active Substance: PIPERACILLIN
     Indication: Pneumonia
     Route: 042
     Dates: start: 20230206, end: 20230208
  27. COMBIVENT [Concomitant]
     Active Substance: ALBUTEROL SULFATE\IPRATROPIUM BROMIDE
     Indication: Chronic obstructive pulmonary disease
     Dosage: DOSE: 10 OTHER
     Route: 055
     Dates: start: 20230206, end: 20230206
  28. COMBIVENT [Concomitant]
     Active Substance: ALBUTEROL SULFATE\IPRATROPIUM BROMIDE
     Dosage: DOSE: 2.5 OTHER
     Route: 055
     Dates: start: 20230210, end: 20230212
  29. COMBIVENT [Concomitant]
     Active Substance: ALBUTEROL SULFATE\IPRATROPIUM BROMIDE
     Dosage: DOSE: 7.5 OTHER
     Route: 055
     Dates: start: 20230213, end: 20230213
  30. COMBIVENT [Concomitant]
     Active Substance: ALBUTEROL SULFATE\IPRATROPIUM BROMIDE
     Dosage: DOSE: 7.5 OTHER
     Route: 055
     Dates: start: 20230211, end: 20230211
  31. COMBIVENT [Concomitant]
     Active Substance: ALBUTEROL SULFATE\IPRATROPIUM BROMIDE
     Dosage: DOSE: 7.5 OTHER
     Route: 055
     Dates: start: 20230212, end: 20230212
  32. COMBIVENT [Concomitant]
     Active Substance: ALBUTEROL SULFATE\IPRATROPIUM BROMIDE
     Route: 055
     Dates: start: 20230129, end: 20230206
  33. BUDESONIDE [Concomitant]
     Active Substance: BUDESONIDE
     Route: 055
     Dates: start: 20230206, end: 20230206
  34. BUDESONIDE [Concomitant]
     Active Substance: BUDESONIDE
     Route: 055
     Dates: start: 20230210, end: 20230212
  35. BUDESONIDE [Concomitant]
     Active Substance: BUDESONIDE
     Route: 055
     Dates: start: 20230213, end: 20230213
  36. POTASSIUM CHLORIDE [Concomitant]
     Active Substance: POTASSIUM CHLORIDE
     Route: 042
     Dates: start: 20230206, end: 20230206
  37. VENTOLIN [Concomitant]
     Active Substance: ALBUTEROL SULFATE
     Route: 055
     Dates: start: 20230213, end: 20230213
  38. RIVAXORED [Concomitant]
     Route: 048
     Dates: start: 20230207, end: 20230213
  39. ACETAMINOPHEN [Concomitant]
     Active Substance: ACETAMINOPHEN
     Dosage: NEXT DOSE ON 29-JAN-2023
     Route: 042
     Dates: start: 20230207, end: 20230207
  40. ACETAMINOPHEN [Concomitant]
     Active Substance: ACETAMINOPHEN
     Route: 042
     Dates: start: 20230209, end: 20230209
  41. ACETAMINOPHEN [Concomitant]
     Active Substance: ACETAMINOPHEN
     Route: 042
     Dates: start: 20230208, end: 20230208
  42. ACETAMINOPHEN [Concomitant]
     Active Substance: ACETAMINOPHEN
     Route: 042
     Dates: start: 20230201, end: 20230201
  43. ACETAMINOPHEN [Concomitant]
     Active Substance: ACETAMINOPHEN
     Route: 042
     Dates: start: 20230206, end: 20230206
  44. ACETAMINOPHEN [Concomitant]
     Active Substance: ACETAMINOPHEN
     Route: 042
     Dates: start: 20230204, end: 20230204
  45. MEROPENEM [Concomitant]
     Active Substance: MEROPENEM
     Indication: Pneumonia
     Route: 042
     Dates: start: 20230209, end: 20230213
  46. MIDAZOLAM [Concomitant]
     Active Substance: MIDAZOLAM
     Route: 042
     Dates: start: 20230210, end: 20230210
  47. MIDAZOLAM [Concomitant]
     Active Substance: MIDAZOLAM
     Route: 042
     Dates: start: 20230212, end: 20230212
  48. SODIUM CHLORIDE [Concomitant]
     Active Substance: SODIUM CHLORIDE
     Dates: start: 20230210
  49. ROCURONIUM [Concomitant]
     Active Substance: ROCURONIUM BROMIDE
     Indication: General anaesthesia
     Route: 042
     Dates: start: 20230210, end: 20230210
  50. RAMLEPSA [Concomitant]
     Indication: Analgesic therapy
     Route: 048
     Dates: start: 20230210, end: 20230212
  51. DEXTROSE [Concomitant]
     Active Substance: DEXTROSE\DEXTROSE MONOHYDRATE
     Route: 042
     Dates: start: 20230211, end: 20230211
  52. DEXTROSE [Concomitant]
     Active Substance: DEXTROSE\DEXTROSE MONOHYDRATE
     Route: 042
     Dates: start: 20230213, end: 20230213
  53. SOLU-MEDROL [Concomitant]
     Active Substance: METHYLPREDNISOLONE SODIUM SUCCINATE
     Route: 042
     Dates: start: 20230212, end: 20230213
  54. BRICANYL [Concomitant]
     Active Substance: TERBUTALINE SULFATE
     Indication: Bronchiectasis
     Route: 042
     Dates: start: 20230213, end: 20230213
  55. TRANEXAMIC ACID [Concomitant]
     Active Substance: TRANEXAMIC ACID
     Route: 042
     Dates: start: 20230213, end: 20230213
  56. NOREPINEPHRINE [Concomitant]
     Active Substance: NOREPINEPHRINE
     Route: 042
     Dates: start: 20230213, end: 20230213
  57. EPINEPHRINE [Concomitant]
     Active Substance: EPINEPHRINE
     Route: 042
     Dates: start: 20230214, end: 20230214
  58. EPINEPHRINE [Concomitant]
     Active Substance: EPINEPHRINE
     Route: 042
     Dates: start: 20230214, end: 20230214
  59. SODIUM BICARBONATE [Concomitant]
     Active Substance: SODIUM BICARBONATE
  60. NATRI CLORID [Concomitant]
  61. HAYEX [Concomitant]
     Indication: Chronic obstructive pulmonary disease
     Route: 048
     Dates: start: 20230128, end: 20230206
  62. HAYEX [Concomitant]
     Indication: Bronchitis
  63. FENTANYL [Concomitant]
     Active Substance: FENTANYL
     Indication: Analgesic therapy
     Dosage: 100MCG/2ML
     Route: 042
     Dates: start: 20230210, end: 20230210
  64. FENTANYL [Concomitant]
     Active Substance: FENTANYL
     Dosage: 100MCG/2ML
     Route: 042
     Dates: start: 20230212, end: 20230212
  65. ATORVASTATIN [Concomitant]
     Active Substance: ATORVASTATIN
     Indication: Angina pectoris
     Route: 048
     Dates: start: 20230128, end: 20230128
  66. BIFACOLD [Concomitant]
     Indication: Bronchitis
     Route: 048
     Dates: start: 20230128, end: 20230128
  67. BIFACOLD [Concomitant]
     Route: 048
     Dates: start: 20230129, end: 20230201
  68. DACOLFORT [Concomitant]
     Indication: Varicose vein
     Route: 048
     Dates: start: 20230130, end: 20230206
  69. PULMICORT TURBUHALER [Concomitant]
     Active Substance: BUDESONIDE
     Indication: Chronic obstructive pulmonary disease
     Route: 055
     Dates: start: 20230129, end: 20230205
  70. PULMICORT TURBUHALER [Concomitant]
     Active Substance: BUDESONIDE
     Dosage: 500 OTHER
     Route: 055
     Dates: start: 20230206, end: 20230206
  71. ATISOLU [Concomitant]
     Route: 042
     Dates: start: 20230201, end: 20230201
  72. AUGBACTAM [Concomitant]
     Indication: Bronchitis
     Route: 048
     Dates: start: 20230129, end: 20230206
  73. AUGBACTAM [Concomitant]
     Indication: Bronchitis
     Route: 042
     Dates: start: 20230128, end: 20230206
  74. AUGBACTAM [Concomitant]
     Route: 042
     Dates: start: 20230128, end: 20230128
  75. AUGBACTAM [Concomitant]
     Route: 042
     Dates: start: 20230206, end: 20230206

REACTIONS (1)
  - Pneumonia [Fatal]

NARRATIVE: CASE EVENT DATE: 20230128
